FAERS Safety Report 5072293-1 (Version None)
Quarter: 2006Q3

REPORT INFORMATION
  Report Type: 
  Country: None (occurrence: None)
  Receive Date: 20060801
  Receipt Date: 20060726
  Transmission Date: 20061208
  Serious: Yes (Death)
  Sender: FDA-Public Use
  Company Number: 200614811BWH

PATIENT
  Sex: Male

DRUGS (2)
  1. TRASYLOL [Suspect]
     Indication: AORTIC SURGERY
  2. TRASYLOL [Suspect]
     Indication: HEART VALVE REPLACEMENT

REACTIONS (1)
  - GASTROINTESTINAL DISORDER [None]
